FAERS Safety Report 6116709-8 (Version None)
Quarter: 2009Q1

REPORT INFORMATION
  Report Type: 
  Country: None (occurrence: None)
  Receive Date: 20090314
  Receipt Date: 20081209
  Transmission Date: 20090719
  Serious: No
  Sender: FDA-Public Use
  Company Number: US-ABBOTT-08P-163-0491804-00

PATIENT
  Sex: Female
  Weight: 70.37 kg

DRUGS (6)
  1. HUMIRA [Suspect]
     Indication: RHEUMATOID ARTHRITIS
     Route: 058
     Dates: start: 20080619, end: 20080713
  2. HUMIRA [Suspect]
     Dates: start: 20081110
  3. METHOTREXATE [Concomitant]
     Indication: RHEUMATOID ARTHRITIS
     Dosage: 2.5MG
     Dates: start: 20060101, end: 20080713
  4. METHOTREXATE [Concomitant]
     Dosage: 2MG
     Route: 050
     Dates: start: 20081101
  5. CELECOXIB [Concomitant]
     Indication: INFLAMMATION
  6. TRAZODONE HCL [Concomitant]
     Indication: INSOMNIA

REACTIONS (4)
  - ASTHENIA [None]
  - FACIAL PAIN [None]
  - HEADACHE [None]
  - NAUSEA [None]
